FAERS Safety Report 6385610-7 (Version None)
Quarter: 2009Q4

REPORT INFORMATION
  Report Type: 
  Country: None (occurrence: None)
  Receive Date: 20091002
  Receipt Date: 20081205
  Transmission Date: 20100525
  Serious: No
  Sender: FDA-Public Use
  Company Number: US-ASTRAZENECA-2008UW23215

PATIENT
  Sex: Female

DRUGS (2)
  1. ARIMIDEX [Suspect]
     Indication: BREAST CANCER
     Route: 048
  2. RADIATION THERAPY [Concomitant]
     Route: 065

REACTIONS (3)
  - ARTHRITIS [None]
  - BREAST ENLARGEMENT [None]
  - ERYTHEMA [None]
